FAERS Safety Report 10162222 (Version 1)
Quarter: 2014Q2

REPORT INFORMATION
  Report Type: Spontaneous
  Country: US (occurrence: None)
  Receive Date: 20140507
  Receipt Date: 20140507
  Transmission Date: 20141212
  Serious: Yes (Other)
  Sender: FDA-Public Use
  Company Number: AUR-APL-2014-05352

PATIENT
  Age: 42 Year
  Sex: Female

DRUGS (8)
  1. KANAMYCIN [Suspect]
     Indication: PRODUCT USED FOR UNKNOWN INDICATION
  2. CEFOXITIN [Suspect]
     Indication: PRODUCT USED FOR UNKNOWN INDICATION
  3. CIPROFLOXACIN [Suspect]
     Indication: PRODUCT USED FOR UNKNOWN INDICATION
  4. AMPICILLIN [Suspect]
     Indication: PRODUCT USED FOR UNKNOWN INDICATION
  5. NALIDIXIC ACID [Suspect]
     Indication: PRODUCT USED FOR UNKNOWN INDICATION
  6. SULFISOXAZOLE [Suspect]
     Indication: PRODUCT USED FOR UNKNOWN INDICATION
  7. STREPTOMYCIN [Suspect]
     Indication: PRODUCT USED FOR UNKNOWN INDICATION
  8. TETRACYCLINE [Suspect]
     Indication: PRODUCT USED FOR UNKNOWN INDICATION

REACTIONS (1)
  - Pathogen resistance [None]
